FAERS Safety Report 5183043-2 (Version None)
Quarter: 2006Q4

REPORT INFORMATION
  Report Type: 
  Country: None (occurrence: None)
  Receive Date: 20061220
  Receipt Date: 20051206
  Transmission Date: 20070319
  Serious: No
  Sender: FDA-Public Use
  Company Number: US-GLAXOSMITHKLINE-A0584778A

PATIENT
  Age: 49 Year
  Sex: Female

DRUGS (1)
  1. NICODERM CQ [Suspect]
     Dates: start: 20051203

REACTIONS (4)
  - ABNORMAL DREAMS [None]
  - CHAPPED LIPS [None]
  - FATIGUE [None]
  - SLEEP DISORDER [None]
